FAERS Safety Report 7076661-8 (Version None)
Quarter: 2010Q4

REPORT INFORMATION
  Report Type: 
  Country: None (occurrence: None)
  Receive Date: 20101101
  Receipt Date: 20101027
  Transmission Date: 20110411
  Serious: No
  Sender: FDA-Public Use
  Company Number: US-PFIZER INC-2010137257

PATIENT
  Sex: Female
  Weight: 86.168 kg

DRUGS (2)
  1. ZOLOFT [Suspect]
     Indication: PANIC REACTION
     Dosage: 200 MG, DAILY
     Route: 048
     Dates: start: 19920101
  2. ZOLOFT [Suspect]
     Indication: ANXIETY

REACTIONS (2)
  - DRUG INEFFECTIVE [None]
  - SOMNOLENCE [None]
